FAERS Safety Report 14939912 (Version 1)
Quarter: 2018Q2

REPORT INFORMATION
  Report Type: Spontaneous
  Country: None (occurrence: GB)
  Receive Date: 20180525
  Receipt Date: 20180525
  Transmission Date: 20180711
  Serious: Yes (Hospitalization, Other)
  Sender: FDA-Public Use
  Company Number: GB-ALSI-201800345

PATIENT
  Age: 72 Year
  Sex: Female

DRUGS (13)
  1. SODIUM GLYCEROPHOSPHATE [Suspect]
     Active Substance: SODIUM GLYCEROPHOSPHATE
     Route: 065
  2. STERILE WATER [Concomitant]
     Active Substance: WATER
     Route: 065
  3. OLEA EUROPAEA OIL; SOYA OIL [Concomitant]
     Route: 065
  4. ERGOCALCIFEROL; PHYTOMENADIONE; RETINOL; TOCOPHEROL [Concomitant]
     Route: 065
  5. AMINO ACIDS NOS; (SEE ATTACHMENT) [Concomitant]
     Route: 065
  6. CALCIUM CHLORIDE. [Concomitant]
     Active Substance: CALCIUM CHLORIDE
     Route: 065
  7. SODIUM CHLORIDE. [Concomitant]
     Active Substance: SODIUM CHLORIDE
     Route: 065
  8. STERILE WATER [Concomitant]
     Active Substance: WATER
     Route: 065
  9. SODIUM CHLORIDE. [Concomitant]
     Active Substance: SODIUM CHLORIDE
     Route: 065
  10. MAGNESIUM SULFATE. [Concomitant]
     Active Substance: MAGNESIUM SULFATE
     Route: 065
  11. POTASSIUM CHLORIDE. [Concomitant]
     Active Substance: POTASSIUM CHLORIDE
     Route: 065
  12. 50% GLUCOSE [Concomitant]
     Active Substance: DEXTROSE
     Route: 065
  13. OXYGEN. [Suspect]
     Active Substance: OXYGEN
     Indication: PRODUCT USED FOR UNKNOWN INDICATION
     Route: 065

REACTIONS (6)
  - Bronchitis [Unknown]
  - Feeling cold [Unknown]
  - Malaise [Unknown]
  - Device related infection [Unknown]
  - Chills [Unknown]
  - Pyrexia [Unknown]

NARRATIVE: CASE EVENT DATE: 20180515
